FAERS Safety Report 20904368 (Version 2)
Quarter: 2022Q2

REPORT INFORMATION
  Report Type: Spontaneous
  Country: GB (occurrence: GB)
  Receive Date: 20220602
  Receipt Date: 20220602
  Transmission Date: 20220720
  Serious: Yes (Death)
  Sender: FDA-Public Use
  Company Number: GB-TEVA-2022-GB-2041429

PATIENT
  Age: 8 Decade
  Sex: Female

DRUGS (5)
  1. PREDNISOLONE [Suspect]
     Active Substance: PREDNISOLONE
     Indication: Haemophagocytic lymphohistiocytosis
     Route: 065
  2. METHYLPREDNISOLONE [Suspect]
     Active Substance: METHYLPREDNISOLONE
     Indication: Haemophagocytic lymphohistiocytosis
     Route: 042
  3. HUMAN IMMUNOGLOBULIN G [Suspect]
     Active Substance: HUMAN IMMUNOGLOBULIN G
     Indication: Haemophagocytic lymphohistiocytosis
     Route: 042
  4. ANAKINRA [Suspect]
     Active Substance: ANAKINRA
     Indication: Haemophagocytic lymphohistiocytosis
     Route: 058
  5. ANAKINRA [Suspect]
     Active Substance: ANAKINRA
     Indication: Haemophagocytic lymphohistiocytosis
     Route: 058

REACTIONS (4)
  - Haemophagocytic lymphohistiocytosis [Fatal]
  - Drug ineffective [Fatal]
  - Catastrophic reaction [Fatal]
  - Oesophageal rupture [Fatal]
